FAERS Safety Report 13323136 (Version 3)
Quarter: 2017Q1

REPORT INFORMATION
  Report Type: Spontaneous
  Country: CH (occurrence: CH)
  Receive Date: 20170310
  Receipt Date: 20170323
  Transmission Date: 20170428
  Serious: Yes (Hospitalization)
  Sender: FDA-Public Use
  Company Number: CH-PFIZER INC-2017102851

PATIENT
  Age: 64 Year
  Sex: Male
  Weight: 51 kg

DRUGS (21)
  1. MIRTAZAPIN [Interacting]
     Active Substance: MIRTAZAPINE
     Dosage: 30 MG, 1X/DAY 0-0-0-1
     Dates: end: 20170201
  2. MIRTAZAPIN [Interacting]
     Active Substance: MIRTAZAPINE
     Dosage: 30 MG, AT NIGHT
     Dates: start: 20170206, end: 20170207
  3. BENERVA [Concomitant]
     Active Substance: THIAMINE
     Dosage: 300 MG, 1X/DAY 1-0-0-0
  4. OXYCONTIN [Interacting]
     Active Substance: OXYCODONE HYDROCHLORIDE
     Indication: PAIN
     Dosage: 40 MG, 2X/DAY 1-0-1
     Dates: start: 2015, end: 20170201
  5. OXYCONTIN [Interacting]
     Active Substance: OXYCODONE HYDROCHLORIDE
     Dosage: 40 MG, DAILY
     Dates: start: 201505
  6. NEURODOL [Concomitant]
     Dosage: 1 DF, 1X/DAY 1-0-0-0
  7. LYRICA [Interacting]
     Active Substance: PREGABALIN
     Dosage: 75 MG, 2X/DAY
     Route: 048
     Dates: start: 20170206, end: 20170208
  8. LYRICA [Interacting]
     Active Substance: PREGABALIN
     Dosage: UNK
     Dates: start: 20170213
  9. OXYCONTIN [Interacting]
     Active Substance: OXYCODONE HYDROCHLORIDE
     Dosage: 20 MG, 2X/DAY 1-0-1
     Dates: start: 2015, end: 20170201
  10. MORPHIN [Interacting]
     Active Substance: MORPHINE
     Dosage: 24 MG, DAILY
     Route: 041
     Dates: start: 20170206
  11. OXYCONTIN [Interacting]
     Active Substance: OXYCODONE HYDROCHLORIDE
     Dosage: 120 MG, DAILY
  12. MIRTAZAPIN [Interacting]
     Active Substance: MIRTAZAPINE
     Dosage: UNK
     Dates: start: 20170213
  13. MOVICOL [Concomitant]
     Active Substance: POLYETHYLENE GLYCOL 3350\POTASSIUM CHLORIDE\SODIUM BICARBONATE\SODIUM CHLORIDE
     Dosage: 1 DF, 1X/DAY 1-0-0-0
  14. LYRICA [Suspect]
     Active Substance: PREGABALIN
     Dosage: 75 MG, 2X/DAY 1-0-1-0
     Route: 048
     Dates: start: 201512, end: 20170201
  15. MORPHIN [Interacting]
     Active Substance: MORPHINE
     Indication: PAIN
     Dosage: 36 MG, 1X/24 HOURS
     Route: 041
     Dates: start: 20170201, end: 20170205
  16. BECOZYM [Concomitant]
     Active Substance: VITAMINS
     Dosage: 1 DF, 1X/DAY 1-0-0-0
  17. MORPHIN [Interacting]
     Active Substance: MORPHINE
     Dosage: 36 MG 1X/24 HOURS
     Route: 041
     Dates: start: 201702, end: 20170214
  18. PANTOPRAZOL [Suspect]
     Active Substance: PANTOPRAZOLE SODIUM
     Dosage: 40 MG, 1X/DAY 1-0-0-0
     Dates: start: 2015
  19. ULTIBRO BREEZHALER [Concomitant]
     Active Substance: GLYCOPYRRONIUM\INDACATEROL
     Dosage: UNK
  20. OXYCONTIN [Interacting]
     Active Substance: OXYCODONE HYDROCHLORIDE
     Dosage: 110 MG, DAILY
     Dates: start: 201512
  21. DOMICILIARY OXYGEN [Concomitant]

REACTIONS (4)
  - Ileus paralytic [Recovered/Resolved]
  - Drug interaction [Recovered/Resolved]
  - Drug interaction [Recovered/Resolved]
  - Ileus paralytic [Recovered/Resolved]

NARRATIVE: CASE EVENT DATE: 20170201
